FAERS Safety Report 5152421-X (Version None)
Quarter: 2006Q4

REPORT INFORMATION
  Report Type: 
  Country: None (occurrence: None)
  Receive Date: 20061116
  Receipt Date: 20060825
  Transmission Date: 20070319
  Serious: Yes (Hospitalization, Other)
  Sender: FDA-Public Use
  Company Number: US-ELI_LILLY_AND_COMPANY-US200609006070

PATIENT
  Age: 64 Year
  Sex: Female
  Weight: 65.759 kg

DRUGS (2)
  1. ARIPIPRAZOLE [Concomitant]
     Dates: start: 20010101, end: 20040101
  2. ZYPREXA [Suspect]
     Dosage: UNK, UNK
     Route: 065
     Dates: start: 20010101, end: 20040101

REACTIONS (3)
  - CATHETERISATION CARDIAC ABNORMAL [None]
  - DIABETES MELLITUS [None]
  - MYOCARDIAL ISCHAEMIA [None]
